FAERS Safety Report 10537714 (Version 1)
Quarter: 2014Q4

REPORT INFORMATION
  Report Type: Spontaneous
  Country: FR (occurrence: FR)
  Receive Date: 20141023
  Receipt Date: 20141023
  Transmission Date: 20150529
  Serious: Yes (Hospitalization)
  Sender: FDA-Public Use
  Company Number: FR-BEH-2014045694

PATIENT
  Age: 33 Year
  Sex: Male

DRUGS (1)
  1. HIZENTRA [Suspect]
     Active Substance: HUMAN IMMUNOGLOBULIN G
     Indication: PRIMARY IMMUNODEFICIENCY SYNDROME
     Dosage: START IN AUG-2012
     Route: 058

REACTIONS (6)
  - Mass [Unknown]
  - Abscess sterile [Unknown]
  - Abscess [Recovered/Resolved]
  - Induration [Recovered/Resolved]
  - Injection site induration [Recovered/Resolved]
  - Inflammation [Unknown]

NARRATIVE: CASE EVENT DATE: 201409
